FAERS Safety Report 13644359 (Version 1)
Quarter: 2017Q2

REPORT INFORMATION
  Report Type: Spontaneous
  Country: US (occurrence: US)
  Receive Date: 20170612
  Receipt Date: 20170612
  Transmission Date: 20170830
  Serious: No
  Sender: FDA-Public Use
  Company Number: US-ROCHE-789811

PATIENT
  Sex: Female
  Weight: 46.3 kg

DRUGS (2)
  1. KLONOPIN [Suspect]
     Active Substance: CLONAZEPAM
     Indication: ANXIETY
     Dosage: DURATION OF USE: 15 YEARS.
     Route: 048
  2. KLONOPIN [Suspect]
     Active Substance: CLONAZEPAM
     Dosage: FREQUENCY: PRN.
     Route: 048

REACTIONS (2)
  - Depression [Unknown]
  - Withdrawal syndrome [Unknown]
